FAERS Safety Report 7716409-4 (Version None)
Quarter: 2011Q3

REPORT INFORMATION
  Report Type: 
  Country: None (occurrence: None)
  Receive Date: 20110829
  Receipt Date: 20110815
  Transmission Date: 20111222
  Serious: Yes (Other)
  Sender: FDA-Public Use
  Company Number: CN-ASTRAZENECA-2011SE43821

PATIENT
  Age: 40 Year
  Sex: Female

DRUGS (1)
  1. IRESSA [Suspect]
     Indication: NON-SMALL CELL LUNG CANCER
     Route: 048

REACTIONS (6)
  - RASH PUSTULAR [None]
  - EPISTAXIS [None]
  - MOUTH ULCERATION [None]
  - RASH [None]
  - VAGINAL HAEMORRHAGE [None]
  - VOMITING [None]
